FAERS Safety Report 21044185 (Version 1)
Quarter: 2022Q3

REPORT INFORMATION
  Report Type: Spontaneous
  Country: US (occurrence: None)
  Receive Date: 20220705
  Receipt Date: 20220705
  Transmission Date: 20221027
  Serious: Yes (Hospitalization)
  Sender: FDA-Public Use
  Company Number: None

PATIENT
  Age: 67 Year
  Sex: Female

DRUGS (9)
  1. NUCALA [Suspect]
     Active Substance: MEPOLIZUMAB
     Indication: Nasal polyps
     Dosage: INJECT 100 MG UNDER THE SKIN (SUBCUTANEOUS INJECTION) TO UPPER ARM, THIGH, OR ABDOMIN EVERY 4 WEEKS
     Route: 058
     Dates: start: 20220415
  2. ALLEGRA [Concomitant]
     Active Substance: FEXOFENADINE HYDROCHLORIDE
  3. AZITHROMYCIN [Concomitant]
     Active Substance: AZITHROMYCIN
  4. BREO ELLIPTA INH [Concomitant]
  5. FLUTICASONE SPR [Concomitant]
  6. IVERMECTIN TAB [Concomitant]
  7. METHYLPRED TAB [Concomitant]
  8. MONELUKAST SODIUM [Concomitant]
  9. PREDNISONE [Concomitant]
     Active Substance: PREDNISONE

REACTIONS (3)
  - Urinary tract infection [None]
  - Asthma [None]
  - Quality of life decreased [None]

NARRATIVE: CASE EVENT DATE: 20220617
